FAERS Safety Report 7931059-2 (Version None)
Quarter: 2011Q4

REPORT INFORMATION
  Report Type: 
  Country: None (occurrence: None)
  Receive Date: 20111121
  Receipt Date: 20111113
  Transmission Date: 20120403
  Serious: Yes (Hospitalization, Other)
  Sender: FDA-Public Use
  Company Number: US-US-EMD SERONO, INC.-7063332

PATIENT
  Sex: Female

DRUGS (1)
  1. REBIF [Suspect]
     Indication: MULTIPLE SCLEROSIS
     Route: 058
     Dates: start: 20110526, end: 20110528

REACTIONS (17)
  - CEREBROVASCULAR ACCIDENT [None]
  - PNEUMONIA [None]
  - CHOLELITHIASIS [None]
  - THYROID NEOPLASM [None]
  - SMALL INTESTINE CARCINOMA [None]
  - DIARRHOEA [None]
  - VOMITING [None]
  - URINE ABNORMALITY [None]
  - PHARYNGEAL OEDEMA [None]
  - GINGIVAL SWELLING [None]
  - OEDEMA PERIPHERAL [None]
  - PYREXIA [None]
  - MYOCARDIAL INFARCTION [None]
  - BLOOD PRESSURE INCREASED [None]
  - HYPOAESTHESIA [None]
  - APHASIA [None]
  - CHILLS [None]
